FAERS Safety Report 8232152-X (Version None)
Quarter: 2012Q1

REPORT INFORMATION
  Report Type: 
  Country: None (occurrence: None)
  Receive Date: 20120323
  Receipt Date: 20120315
  Transmission Date: 20120608
  Serious: Yes (Other)
  Sender: FDA-Public Use
  Company Number: US-CELGENEUS-163-21880-12030373

PATIENT
  Sex: Female
  Weight: 78.5 kg

DRUGS (13)
  1. CRESTOR [Concomitant]
     Dosage: 20 MILLIGRAM
     Route: 065
  2. TAMOXIFEN CITRATE [Concomitant]
     Dosage: 20 MILLIGRAM
     Route: 048
     Dates: start: 20110901
  3. FENTANYL [Concomitant]
     Dosage: 12 MICROGRAM
     Route: 065
  4. HYDROMORPHONE HCL [Concomitant]
     Dosage: 2 MILLIGRAM
     Route: 065
  5. VITAMIN B COMPLEX CAP [Concomitant]
     Dosage: 1 CAPSULE
     Route: 065
  6. REVLIMID [Suspect]
     Indication: LYMPHOMA
     Dosage: 15 MILLIGRAM
     Route: 048
     Dates: start: 20110211, end: 20110602
  7. WHOLE BLOOD [Concomitant]
     Route: 041
  8. FERROUS SULFATE TAB [Concomitant]
     Dosage: 324 MILLIGRAM
     Route: 065
  9. ESOMEPRAZOLE MAGNESEIUM [Concomitant]
     Dosage: 20 MILLIGRAM
     Route: 065
  10. M.V.I. [Concomitant]
     Dosage: 1 TABLET
     Route: 065
  11. METHYLPREDNISOLONE [Concomitant]
     Dosage: 4 MILLIGRAM
     Route: 065
  12. SYNTHROID [Concomitant]
     Dosage: 50 MILLIGRAM
     Route: 065
  13. LORAZEPAM [Concomitant]
     Route: 065

REACTIONS (1)
  - MYELODYSPLASTIC SYNDROME [None]
